FAERS Safety Report 7339244-8 (Version None)
Quarter: 2011Q1

REPORT INFORMATION
  Report Type: 
  Country: None (occurrence: None)
  Receive Date: 20110308
  Receipt Date: 20110225
  Transmission Date: 20110831
  Serious: Yes (Hospitalization, Other)
  Sender: FDA-Public Use
  Company Number: US-ELI_LILLY_AND_COMPANY-US201102007550

PATIENT
  Sex: Female

DRUGS (2)
  1. FORTEO [Suspect]
     Indication: OSTEOPOROSIS
     Dosage: 20 UG, DAILY (1/D)
     Route: 065
     Dates: start: 20110125, end: 20110215
  2. COUMADIN [Concomitant]

REACTIONS (4)
  - HEMIPARESIS [None]
  - EYELID FUNCTION DISORDER [None]
  - DIPLOPIA [None]
  - CEREBROVASCULAR ACCIDENT [None]
